FAERS Safety Report 4829049-1 (Version None)
Quarter: 2005Q4

REPORT INFORMATION
  Report Type: 
  Country: None (occurrence: None)
  Receive Date: 20051027
  Receipt Date: 20050225
  Transmission Date: 20060501
  Serious: Yes (Hospitalization)
  Sender: FDA-Public Use
  Company Number: 200511021US

PATIENT
  Age: 57 Year
  Sex: Female
  Weight: 75 kg

DRUGS (5)
  1. ARAVA [Suspect]
     Indication: RHEUMATOID ARTHRITIS
     Dosage: 100 MG QD
     Dates: start: 20041207, end: 20041209
  2. ARAVA [Suspect]
     Indication: RHEUMATOID ARTHRITIS
     Dosage: 20 MG QD
     Dates: start: 20041210
  3. ARAVA [Suspect]
     Indication: RHEUMATOID ARTHRITIS
     Dosage: 10 MG
     Dates: start: 20041207
  4. PREDNISONE [Concomitant]
  5. ENBREL [Concomitant]

REACTIONS (2)
  - PRURITUS GENERALISED [None]
  - RASH GENERALISED [None]
